FAERS Safety Report 14195749 (Version 1)
Quarter: 2017Q4

REPORT INFORMATION
  Report Type: Spontaneous
  Country: DE (occurrence: DE)
  Receive Date: 20171116
  Receipt Date: 20171116
  Transmission Date: 20180321
  Serious: Yes (Hospitalization)
  Sender: FDA-Public Use
  Company Number: DE-MYLANLABS-2017M1071783

PATIENT
  Age: 43 Year
  Sex: Male

DRUGS (3)
  1. PREDNISON [Suspect]
     Active Substance: PREDNISONE
     Indication: ECZEMA
     Dosage: 50 MG, QD FOR 3 DAYS
     Route: 048
  2. PREDNISOLONE. [Suspect]
     Active Substance: PREDNISOLONE
     Indication: ECZEMA
     Dosage: UNK
     Route: 042
  3. PREDNICARBATE. [Suspect]
     Active Substance: PREDNICARBATE
     Indication: ECZEMA
     Dosage: UNK
     Route: 061

REACTIONS (4)
  - Acute generalised exanthematous pustulosis [Recovered/Resolved]
  - Eczema [Recovered/Resolved]
  - Rash papular [Recovered/Resolved]
  - Condition aggravated [Unknown]
